FAERS Safety Report 11579997 (Version 6)
Quarter: 2016Q4

REPORT INFORMATION
  Report Type: Spontaneous
  Country: US (occurrence: US)
  Receive Date: 20150930
  Receipt Date: 20161230
  Transmission Date: 20170206
  Serious: Yes (Other)
  Sender: FDA-Public Use
  Company Number: US-JAZZ-2015-US-014729

PATIENT
  Sex: Male

DRUGS (3)
  1. XYREM [Suspect]
     Active Substance: SODIUM OXYBATE
     Dosage: 4.5 G, BID
     Route: 048
     Dates: start: 201009
  2. XYREM [Suspect]
     Active Substance: SODIUM OXYBATE
     Indication: NARCOLEPSY
     Dosage: 2.25 G, BID
     Route: 048
     Dates: start: 200312, end: 2003
  3. XYREM [Suspect]
     Active Substance: SODIUM OXYBATE
     Indication: CATAPLEXY
     Dosage: DOSE ADJUSTMENTS
     Route: 048

REACTIONS (9)
  - Weight decreased [Unknown]
  - Intentional product use issue [Unknown]
  - Post-traumatic stress disorder [Not Recovered/Not Resolved]
  - Osteoarthritis [Unknown]
  - Blood cholesterol abnormal [Recovering/Resolving]
  - Blood pressure abnormal [Recovering/Resolving]
  - Depression [Not Recovered/Not Resolved]
  - Diabetes mellitus [Recovering/Resolving]
  - Glycosylated haemoglobin increased [Recovering/Resolving]

NARRATIVE: CASE EVENT DATE: 2015
